FAERS Safety Report 26084486 (Version 3)
Quarter: 2025Q4

REPORT INFORMATION
  Report Type: Spontaneous
  Country: US (occurrence: US)
  Receive Date: 20251124
  Receipt Date: 20251203
  Transmission Date: 20260117
  Serious: Yes (Death)
  Sender: PFIZER
  Company Number: US-PFIZER INC-202500231650

PATIENT
  Age: 83 Year
  Sex: Male

DRUGS (1)
  1. VYNDAMAX [Suspect]
     Active Substance: TAFAMIDIS
     Indication: Acquired ATTR amyloidosis
     Dosage: 61 MG, 1X/DAY
     Dates: end: 20250116

REACTIONS (1)
  - Death [Fatal]

NARRATIVE: CASE EVENT DATE: 20250116
